FAERS Safety Report 7655681-6 (Version None)
Quarter: 2011Q3

REPORT INFORMATION
  Report Type: 
  Country: None (occurrence: None)
  Receive Date: 20110729
  Receipt Date: 20110719
  Transmission Date: 20111222
  Serious: Yes (Death)
  Sender: FDA-Public Use
  Company Number: FK201101401

PATIENT
  Age: 58 Year
  Sex: Male

DRUGS (5)
  1. VORICONAZOLE [Suspect]
     Indication: ANTIFUNGAL TREATMENT
     Dosage: 300 MG, LOADING DOSE, INTRAVENOUS 200 MG, DAILY MAINTENANCE DOSE 400 MG, DAILY
     Route: 042
  2. METHYLPREDNISOLONE SODIUM SUCCINATE [Suspect]
     Indication: STEROID THERAPY
     Dosage: 500 MG, FOR 3 DAYS PULSE THERAPY, INTRAVENOUS (NOT OTHERWISE SPECIFIED)
     Route: 042
  3. SULFAMETHOXAZOLE AND TRIMETHOPRIM [Concomitant]
  4. PREDNISOLONE [Suspect]
     Indication: PREMEDICATION
     Dosage: 30 MG, DAILY15 MG, DAILY
     Dates: start: 20081112, end: 20081209
  5. PREDNISOLONE [Suspect]
     Indication: PREMEDICATION
     Dosage: 30 MG, DAILY15 MG, DAILY
     Dates: start: 20081210

REACTIONS (5)
  - RESPIRATORY FAILURE [None]
  - NO THERAPEUTIC RESPONSE [None]
  - SCEDOSPORIUM INFECTION [None]
  - LUNG INFILTRATION [None]
  - ASPERGILLOSIS [None]
